FAERS Safety Report 5986182-9 (Version None)
Quarter: 2008Q4

REPORT INFORMATION
  Report Type: 
  Country: None (occurrence: None)
  Receive Date: 20081209
  Receipt Date: 20081204
  Transmission Date: 20090506
  Serious: Yes (Death)
  Sender: FDA-Public Use
  Company Number: CN-ABBOTT-08P-035-0489334-00

PATIENT
  Sex: Male
  Weight: 41 kg

DRUGS (1)
  1. KALETRA [Suspect]
     Indication: ACQUIRED IMMUNODEFICIENCY SYNDROME
     Dosage: 400/100 MG TWICE A DAY
     Route: 048
     Dates: start: 20080811

REACTIONS (3)
  - PNEUMONIA [None]
  - PULMONARY TUBERCULOSIS [None]
  - SHOCK [None]
